FAERS Safety Report 10206003 (Version 3)
Quarter: 2014Q2

REPORT INFORMATION
  Report Type: Spontaneous
  Country: CA (occurrence: CA)
  Receive Date: 20140530
  Receipt Date: 20140610
  Transmission Date: 20141212
  Serious: Yes (Other)
  Sender: FDA-Public Use
  Company Number: CA-ROCHE-1405563

PATIENT
  Age: 56 Year
  Sex: Female

DRUGS (13)
  1. ACTEMRA [Suspect]
     Indication: PRODUCT USED FOR UNKNOWN INDICATION
     Route: 065
     Dates: start: 20110601, end: 20120601
  2. ACTEMRA [Suspect]
     Route: 065
     Dates: end: 201208
  3. METHOTREXATE [Suspect]
     Indication: PRODUCT USED FOR UNKNOWN INDICATION
     Route: 065
     Dates: start: 1997, end: 2001
  4. METHOTREXATE [Suspect]
     Route: 065
     Dates: start: 201105, end: 201207
  5. SALAZOPYRIN [Suspect]
     Indication: PRODUCT USED FOR UNKNOWN INDICATION
     Route: 065
     Dates: start: 1992, end: 2001
  6. SALAZOPYRIN [Suspect]
     Route: 065
     Dates: start: 201206, end: 201207
  7. ENBREL [Suspect]
     Indication: PRODUCT USED FOR UNKNOWN INDICATION
     Route: 065
     Dates: start: 200503, end: 200907
  8. ENBREL [Suspect]
     Dosage: UNKNOWN RE-START DATE
     Route: 065
     Dates: start: 201010, end: 201105
  9. ENBREL [Suspect]
     Route: 065
     Dates: start: 201206
  10. PREDNISONE [Concomitant]
  11. FOLIC ACID [Concomitant]
  12. OMEGA (UNK INGREDIENTS) [Concomitant]
  13. VITAMIN C [Concomitant]

REACTIONS (3)
  - Malignant melanoma [Recovered/Resolved]
  - Arthropathy [Unknown]
  - Drug ineffective [Unknown]
